FAERS Safety Report 8543737-5 (Version None)
Quarter: 2012Q3

REPORT INFORMATION
  Report Type: 
  Country: None (occurrence: None)
  Receive Date: 20120727
  Receipt Date: 20120713
  Transmission Date: 20120928
  Serious: Yes (Hospitalization, Other)
  Sender: FDA-Public Use
  Company Number: FR-PFIZER INC-2012172886

PATIENT
  Age: 43 Year
  Sex: Female
  Weight: 83 kg

DRUGS (20)
  1. SEROQUEL [Suspect]
     Dosage: 300 MG, 1X/DAY
     Route: 048
     Dates: start: 20120104, end: 20120129
  2. EUPRESSYL [Suspect]
     Indication: PRODUCT USED FOR UNKNOWN INDICATION
     Dosage: 60 MG, 1X/DAY
     Route: 048
     Dates: start: 20120114
  3. VALIUM [Concomitant]
     Dosage: UNK
     Dates: end: 20111118
  4. TERCIAN [Suspect]
     Indication: PRODUCT USED FOR UNKNOWN INDICATION
     Dosage: 100 MG, 2X/DAY
     Route: 048
     Dates: end: 20111118
  5. ATORVASTATIN [Suspect]
     Indication: PRODUCT USED FOR UNKNOWN INDICATION
     Dosage: UNK
     Dates: start: 20120115, end: 20120118
  6. RABEPRAZOLE SODIUM [Suspect]
     Indication: PRODUCT USED FOR UNKNOWN INDICATION
     Dosage: 20 MG, 1X/DAY
     Route: 048
  7. THERALENE [Concomitant]
  8. PAROXETINE [Suspect]
     Indication: PRODUCT USED FOR UNKNOWN INDICATION
     Dosage: 20 MG, 1X/DAY
     Dates: end: 20111118
  9. LYRICA [Concomitant]
  10. LEPTICUR [Concomitant]
  11. CORDARONE [Suspect]
     Indication: ATRIAL FIBRILLATION
     Dosage: 200 MG, 1X/DAY
     Route: 048
     Dates: start: 20111201, end: 20120125
  12. ZOLPIDEM TARTRATE [Suspect]
     Indication: PRODUCT USED FOR UNKNOWN INDICATION
     Dosage: 10 MG, 1X/DAY
     Route: 048
     Dates: end: 20111118
  13. GLUCOPHAGE [Suspect]
     Indication: PRODUCT USED FOR UNKNOWN INDICATION
     Dosage: 850 MG, UNK
     Route: 048
  14. VALPROIC ACID [Suspect]
     Indication: PRODUCT USED FOR UNKNOWN INDICATION
     Dosage: 300 MG, 4X/DAY
     Route: 048
     Dates: end: 20111118
  15. SULFARLEM [Concomitant]
     Dosage: UNK
     Dates: end: 20111118
  16. FLUTICASONE PROPIONATE/SALMETEROL [Concomitant]
  17. VENTOLIN [Concomitant]
  18. LITHIUM CARBONATE [Concomitant]
     Dosage: UNK
     Dates: end: 20111118
  19. ACAMPROSATE CALCIUM [Concomitant]
  20. ALFUZOSIN HYDROCHLORIDE [Suspect]
     Indication: PRODUCT USED FOR UNKNOWN INDICATION
     Dosage: 10 MG, 1X/DAY
     Route: 048
     Dates: start: 20120121

REACTIONS (21)
  - BLOOD ALKALINE PHOSPHATASE INCREASED [None]
  - RENAL FAILURE [None]
  - TOXICITY TO VARIOUS AGENTS [None]
  - PNEUMONIA STREPTOCOCCAL [None]
  - INFLAMMATION [None]
  - DEVICE RELATED INFECTION [None]
  - SEPTIC SHOCK [None]
  - CYTOLYTIC HEPATITIS [None]
  - CHOLESTASIS [None]
  - GAMMA-GLUTAMYLTRANSFERASE INCREASED [None]
  - AGITATION [None]
  - HEPATOMEGALY [None]
  - HEPATOTOXICITY [None]
  - ATRIAL FIBRILLATION [None]
  - HYPERTHERMIA [None]
  - COLITIS ISCHAEMIC [None]
  - BACTERIAL TEST POSITIVE [None]
  - BLADDER DILATATION [None]
  - SOMNOLENCE [None]
  - HAEMODIALYSIS [None]
  - PSEUDOMONAS TEST POSITIVE [None]
